FAERS Safety Report 5735084-1 (Version None)
Quarter: 2008Q2

REPORT INFORMATION
  Report Type: 
  Country: None (occurrence: None)
  Receive Date: 20080512
  Receipt Date: 20080501
  Transmission Date: 20081010
  Serious: Yes (Other)
  Sender: FDA-Public Use
  Company Number: US-AMGEN-QUU277428

PATIENT
  Sex: Female

DRUGS (1)
  1. ENBREL [Suspect]
     Indication: PSORIASIS
     Route: 058
     Dates: start: 20080401

REACTIONS (6)
  - ASTHENIA [None]
  - DIZZINESS [None]
  - FLUSHING [None]
  - HYPOAESTHESIA [None]
  - PARAESTHESIA [None]
  - VISION BLURRED [None]
